FAERS Safety Report 14896051 (Version 1)
Quarter: 2018Q2

REPORT INFORMATION
  Report Type: Spontaneous
  Country: US (occurrence: US)
  Receive Date: 20180426
  Receipt Date: 20180426
  Transmission Date: 20180711
  Serious: Yes (Life-Threatening, Hospitalization, Disabling)
  Sender: FDA-Public Use
  Company Number: None

PATIENT
  Age: 11 Year
  Sex: Female
  Weight: 31.95 kg

DRUGS (9)
  1. OMEPRAZOLE. [Concomitant]
     Active Substance: OMEPRAZOLE
  2. IRON [Concomitant]
     Active Substance: IRON
  3. PROGRAF [Concomitant]
     Active Substance: TACROLIMUS\TACROLIMUS ANHYDROUS
  4. MELATONIN [Concomitant]
     Active Substance: MELATONIN
  5. LAMICTAL [Suspect]
     Active Substance: LAMOTRIGINE
     Indication: AFFECTIVE DISORDER
     Route: 048
     Dates: start: 20130112, end: 20130129
  6. RISPERIDONE. [Concomitant]
     Active Substance: RISPERIDONE
  7. VITAMIN D [Concomitant]
     Active Substance: CHOLECALCIFEROL
  8. FLOVENT [Concomitant]
     Active Substance: FLUTICASONE PROPIONATE
  9. WELLBUTRIN [Concomitant]
     Active Substance: BUPROPION HYDROCHLORIDE

REACTIONS (14)
  - Acute hepatic failure [None]
  - Coma [None]
  - Vomiting [None]
  - Rash [None]
  - Aggression [None]
  - Jaundice [None]
  - Headache [None]
  - Abdominal pain [None]
  - Dehydration [None]
  - Urinary retention [None]
  - Pyrexia [None]
  - Influenza [None]
  - Cerebrovascular accident [None]
  - Liver transplant [None]

NARRATIVE: CASE EVENT DATE: 20130130
